FAERS Safety Report 6741187-5 (Version None)
Quarter: 2010Q2

REPORT INFORMATION
  Report Type: 
  Country: None (occurrence: None)
  Receive Date: 20100520
  Receipt Date: 20100218
  Transmission Date: 20101027
  Serious: Yes (Hospitalization)
  Sender: FDA-Public Use
  Company Number: 514176

PATIENT
  Age: 17 Year
  Sex: Male

DRUGS (1)
  1. DEXTROSE 5%+.45% NACL INJ.,USPW/.075,.15,.224%+.3% KCL INJ (DEXTROSE A [Suspect]
     Indication: BLOOD POTASSIUM DECREASED
     Dosage: 1000CC AT 125ML/HOUR; CONTINUOUS
     Route: 042
     Dates: start: 20091123

REACTIONS (1)
  - EXTRAVASATION [None]
